FAERS Safety Report 11789731 (Version 2)
Quarter: 2015Q4

REPORT INFORMATION
  Report Type: Spontaneous
  Country: NL (occurrence: NL)
  Receive Date: 20151201
  Receipt Date: 20151211
  Transmission Date: 20160305
  Serious: Yes (Other)
  Sender: FDA-Public Use
  Company Number: NL-SA-2015SA171864

PATIENT
  Age: 77 Year
  Sex: Male
  Weight: 62 kg

DRUGS (13)
  1. DIVISUN [Concomitant]
     Dosage: DOSE: 800 IE
     Route: 048
     Dates: start: 201505
  2. NEBIVOLOL. [Concomitant]
     Active Substance: NEBIVOLOL
     Route: 048
     Dates: start: 2012
  3. PROBIOTICA [Concomitant]
     Active Substance: PROBIOTICS NOS
  4. AVODART [Concomitant]
     Active Substance: DUTASTERIDE
     Route: 048
     Dates: start: 2002
  5. FLUTIFORM [Concomitant]
     Active Substance: FLUTICASONE PROPIONATE\FORMOTEROL FUMARATE
     Dosage: FORM:AEROSOL?DOSE: 2 INHAL.
     Route: 055
     Dates: start: 2010
  6. MONO-CEDOCARD RETARD [Concomitant]
     Route: 048
     Dates: start: 2012
  7. FUROSEMIDE. [Concomitant]
     Active Substance: FUROSEMIDE
     Route: 048
     Dates: start: 2009
  8. RIFINAH [Suspect]
     Active Substance: ISONIAZID\RIFAMPIN
     Indication: LATENT TUBERCULOSIS
     Dosage: STRENGTH: 300 +150 MG
     Route: 048
     Dates: start: 20151024, end: 20151108
  9. ACENOCOUMAROL [Suspect]
     Active Substance: ACENOCOUMAROL
     Dosage: DOSE-1 DD AS SCHEDULED (2,5?TABLET DAILY OR 2 OR 3?TABLETS DAILY)
     Route: 048
     Dates: start: 2009
  10. SIMVASTATIN. [Concomitant]
     Active Substance: SIMVASTATIN
     Route: 048
     Dates: start: 2009
  11. PANTOPRAZOLE [Concomitant]
     Active Substance: PANTOPRAZOLE SODIUM
     Route: 048
     Dates: start: 2009
  12. PROCORALAN [Concomitant]
     Active Substance: IVABRADINE
     Route: 048
     Dates: start: 2013
  13. CANDESARTAN [Concomitant]
     Active Substance: CANDESARTAN
     Route: 048
     Dates: start: 2009

REACTIONS (5)
  - Drug interaction [Unknown]
  - Pneumonia [Recovered/Resolved]
  - Abdominal discomfort [Recovering/Resolving]
  - Irritable bowel syndrome [Recovering/Resolving]
  - International normalised ratio decreased [Recovered/Resolved]

NARRATIVE: CASE EVENT DATE: 20151024
